FAERS Safety Report 24952022 (Version 1)
Quarter: 2025Q1

REPORT INFORMATION
  Report Type: Spontaneous
  Country: US (occurrence: None)
  Receive Date: 20250208
  Receipt Date: 20250208
  Transmission Date: 20250409
  Serious: Yes (Life-Threatening, Disabling, Other)
  Sender: FDA-CTU
  Company Number: None

PATIENT
  Age: 75 Year
  Sex: Female
  Weight: 35.1 kg

DRUGS (4)
  1. ATORVASTATIN CALCIUM [Suspect]
     Active Substance: ATORVASTATIN CALCIUM
     Indication: Blood cholesterol
     Dosage: 1 TABLET DAILY ORAL
     Route: 048
  2. EDARBI [Concomitant]
     Active Substance: AZILSARTAN KAMEDOXOMIL
  3. CLOPRIDOGREL [Concomitant]
  4. LIFE EXTENSION: Bone Restore Elite [Concomitant]

REACTIONS (3)
  - Asthenia [None]
  - Gait disturbance [None]
  - Muscle atrophy [None]

NARRATIVE: CASE EVENT DATE: 20230623
